FAERS Safety Report 14261691 (Version 1)
Quarter: 2017Q4

REPORT INFORMATION
  Report Type: Spontaneous
  Country: US (occurrence: US)
  Receive Date: 20171208
  Receipt Date: 20171208
  Transmission Date: 20180321
  Serious: Yes (Other)
  Sender: FDA-Public Use
  Company Number: None

PATIENT
  Age: 65 Year
  Sex: Female
  Weight: 68.4 kg

DRUGS (4)
  1. CYMBALTA [Suspect]
     Active Substance: DULOXETINE HYDROCHLORIDE
     Indication: MYALGIA
     Dosage: ?          QUANTITY:60 CAPSULE(S);?
     Route: 048
  2. CYMBALTA [Suspect]
     Active Substance: DULOXETINE HYDROCHLORIDE
     Indication: ARTHRALGIA
     Dosage: ?          QUANTITY:60 CAPSULE(S);?
     Route: 048
  3. HORMONE REPLACEMENT [Concomitant]
  4. CYMBALTA [Suspect]
     Active Substance: DULOXETINE HYDROCHLORIDE
     Indication: DEPRESSION
     Dosage: ?          QUANTITY:60 CAPSULE(S);?
     Route: 048

REACTIONS (5)
  - Contusion [None]
  - Urticaria [None]
  - Hyperaesthesia [None]
  - Skin exfoliation [None]
  - Blister [None]

NARRATIVE: CASE EVENT DATE: 20171118
